FAERS Safety Report 11296170 (Version 1)
Quarter: 2015Q3

REPORT INFORMATION
  Report Type: Spontaneous
  Country: US (occurrence: US)
  Receive Date: 20150722
  Receipt Date: 20150722
  Transmission Date: 20151125
  Serious: No
  Sender: FDA-Public Use
  Company Number: US-ELI_LILLY_AND_COMPANY-US201004007593

PATIENT
  Age: 53 Year
  Sex: Female

DRUGS (4)
  1. ACTONEL [Concomitant]
     Active Substance: RISEDRONATE SODIUM
     Dosage: UNK, UNKNOWN
     Route: 065
  2. BONIVA [Concomitant]
     Active Substance: IBANDRONATE SODIUM
     Dosage: UNK, UNKNOWN
     Route: 065
  3. FOSAMAX [Concomitant]
     Active Substance: ALENDRONATE SODIUM
     Dosage: UNK, UNKNOWN
     Route: 065
  4. EVISTA [Suspect]
     Active Substance: RALOXIFENE HYDROCHLORIDE
     Dosage: 60 MG, DAILY (1/D)
     Route: 065

REACTIONS (1)
  - Malaise [Unknown]
